FAERS Safety Report 7562175-5 (Version None)
Quarter: 2011Q2

REPORT INFORMATION
  Report Type: 
  Country: None (occurrence: None)
  Receive Date: 20110620
  Receipt Date: 20110620
  Transmission Date: 20111010
  Serious: Yes (Hospitalization)
  Sender: FDA-Public Use
  Company Number: None

PATIENT
  Age: 80 Year
  Sex: Male
  Weight: 64 kg

DRUGS (2)
  1. CARVEDILOL [Suspect]
     Indication: CARDIAC FAILURE CONGESTIVE
     Dosage: 1 TAB BID PO
     Route: 048
     Dates: start: 20110608, end: 20110613
  2. CARVEDILOL [Suspect]
     Indication: CORONARY ARTERIAL STENT INSERTION
     Dosage: 1 TAB BID PO
     Route: 048
     Dates: start: 20110608, end: 20110613

REACTIONS (6)
  - ATRIOVENTRICULAR BLOCK SECOND DEGREE [None]
  - EXTRASYSTOLES [None]
  - PULSELESS ELECTRICAL ACTIVITY [None]
  - DRY GANGRENE [None]
  - CARDIAC ARREST [None]
  - VENTRICULAR TACHYCARDIA [None]
